FAERS Safety Report 4432532-4 (Version None)
Quarter: 2004Q3

REPORT INFORMATION
  Report Type: 
  Country: None (occurrence: None)
  Receive Date: 20040820
  Receipt Date: 20040809
  Transmission Date: 20050211
  Serious: No
  Sender: FDA-Public Use
  Company Number: 2004UW16939

PATIENT
  Sex: Male

DRUGS (1)
  1. CASODEX [Suspect]
     Indication: PROSTATE CANCER
     Dosage: 50 MG PO
     Route: 048

REACTIONS (2)
  - ORTHOSTATIC HYPOTENSION [None]
  - POST PROCEDURAL HAEMORRHAGE [None]
